FAERS Safety Report 10685080 (Version 2)
Quarter: 2015Q1

REPORT INFORMATION
  Report Type: Report from Study
  Country: CA (occurrence: CA)
  Receive Date: 20141231
  Receipt Date: 20150302
  Transmission Date: 20150720
  Serious: Yes (Other)
  Sender: FDA-Public Use
  Company Number: CA-SA-2014SA178433

PATIENT
  Age: 42 Year
  Sex: Female

DRUGS (4)
  1. PANTOLOC [Concomitant]
     Active Substance: PANTOPRAZOLE SODIUM
     Route: 048
  2. AUBAGIO [Suspect]
     Active Substance: TERIFLUNOMIDE
     Indication: RELAPSING-REMITTING MULTIPLE SCLEROSIS
     Route: 048
     Dates: start: 20140604
  3. PHENOXYMETHYLPENICILLIN POTASSIUM [Concomitant]
     Active Substance: PENICILLIN V POTASSIUM
     Indication: INFECTION
     Route: 048
     Dates: start: 20141217
  4. EMPRACET [Concomitant]
     Indication: PAIN
     Route: 048
     Dates: start: 20141209

REACTIONS (4)
  - Headache [Recovered/Resolved]
  - Feeding disorder [Recovered/Resolved]
  - Post procedural infection [Recovered/Resolved]
  - Pain [Recovered/Resolved]

NARRATIVE: CASE EVENT DATE: 20141209
